FAERS Safety Report 7300116-6 (Version None)
Quarter: 2011Q1

REPORT INFORMATION
  Report Type: 
  Country: None (occurrence: None)
  Receive Date: 20110217
  Receipt Date: 20110209
  Transmission Date: 20110831
  Serious: Yes (Other)
  Sender: FDA-Public Use
  Company Number: JP-GENENTECH-313586

PATIENT
  Age: 78 Year
  Sex: Female

DRUGS (5)
  1. CYCLOPHOSPHAMIDE [Concomitant]
     Indication: B-CELL LYMPHOMA
  2. RITUXAN [Suspect]
     Indication: B-CELL LYMPHOMA
  3. PIRARUBICIN HYDROCHLORIDE [Concomitant]
     Indication: B-CELL LYMPHOMA
  4. PREDNISOLONE [Concomitant]
     Indication: B-CELL LYMPHOMA
  5. VINCRISTINE SULFATE [Concomitant]
     Indication: B-CELL LYMPHOMA

REACTIONS (1)
  - PNEUMOCYSTIS JIROVECI PNEUMONIA [None]
